FAERS Safety Report 19520779 (Version 2)
Quarter: 2021Q3

REPORT INFORMATION
  Report Type: Spontaneous
  Country: AU (occurrence: AU)
  Receive Date: 20210712
  Receipt Date: 20210721
  Transmission Date: 20211014
  Serious: Yes (Hospitalization)
  Sender: FDA-Public Use
  Company Number: AU-PFIZER INC-2021790240

PATIENT
  Age: 89 Year
  Sex: Male

DRUGS (3)
  1. QUETIAPINE APOTEX [Concomitant]
     Active Substance: QUETIAPINE
     Dosage: UNK
  2. RISPERIDONE. [Concomitant]
     Active Substance: RISPERIDONE
     Dosage: UNK
  3. MIDAZOLAM HCL [Suspect]
     Active Substance: MIDAZOLAM HYDROCHLORIDE
     Dosage: UNK UNK, AS NEEDED (6 HOURLY PRN)
     Route: 058

REACTIONS (6)
  - Depressed level of consciousness [Unknown]
  - Fall [Unknown]
  - Abnormal behaviour [Unknown]
  - Product use issue [Unknown]
  - Off label use [Unknown]
  - Dementia [Unknown]
